FAERS Safety Report 5012512-0 (Version None)
Quarter: 2006Q2

REPORT INFORMATION
  Report Type: 
  Country: None (occurrence: None)
  Receive Date: 20060411
  Receipt Date: 20060112
  Transmission Date: 20061013
  Serious: No
  Sender: FDA-Public Use
  Company Number: 2006S1000026

PATIENT

DRUGS (1)
  1. CUBICIN [Suspect]

REACTIONS (2)
  - ARTHRALGIA [None]
  - MUSCLE SPASMS [None]
